FAERS Safety Report 19006898 (Version 1)
Quarter: 2021Q1

REPORT INFORMATION
  Report Type: Spontaneous
  Country: CN (occurrence: CN)
  Receive Date: 20210315
  Receipt Date: 20210315
  Transmission Date: 20210420
  Serious: Yes (Hospitalization)
  Sender: FDA-Public Use
  Company Number: CN-NOVOPROD-793118

PATIENT
  Sex: Male

DRUGS (3)
  1. ISOPHANE INSULIN [Suspect]
     Active Substance: INSULIN NOS
     Indication: DIABETES MELLITUS
     Dosage: BEFORE 3 MEALS, 10U BEFORE SLEEPING
     Route: 065
  2. INSULIN LISPRO [Suspect]
     Active Substance: INSULIN LISPRO
     Indication: DIABETES MELLITUS
     Dosage: 9U?7U?5U BEFORE 3 MEALS
     Route: 065
  3. LEVEMIR [Suspect]
     Active Substance: INSULIN DETEMIR
     Indication: DIABETES MELLITUS
     Dosage: 4U
     Route: 065

REACTIONS (4)
  - Lipoatrophy [Unknown]
  - Injection site hypersensitivity [Unknown]
  - Insulin autoimmune syndrome [Unknown]
  - Shock hypoglycaemic [Unknown]
